FAERS Safety Report 24751712 (Version 2)
Quarter: 2025Q2

REPORT INFORMATION
  Report Type: Spontaneous
  Country: US (occurrence: US)
  Receive Date: 20241219
  Receipt Date: 20250529
  Transmission Date: 20250716
  Serious: Yes (Hospitalization, Other)
  Sender: SUNOVION
  Company Number: US-SMPA-2024SPA006236

PATIENT

DRUGS (1)
  1. ORGOVYX [Suspect]
     Active Substance: RELUGOLIX
     Indication: Prostate cancer
     Dosage: 120/TAKE ONE TABLET BY MOUTH ONCE DAILY AROUND THE SAME TIME
     Route: 048

REACTIONS (3)
  - Pericardial effusion [Unknown]
  - Myocardial infarction [Unknown]
  - Therapy interrupted [Unknown]
